FAERS Safety Report 25348957 (Version 1)
Quarter: 2025Q2

REPORT INFORMATION
  Report Type: Spontaneous
  Country: US (occurrence: US)
  Receive Date: 20250522
  Receipt Date: 20250522
  Transmission Date: 20250717
  Serious: No
  Sender: INSUD PHARMA
  Company Number: US-INSUD PHARMA-2505US03618

PATIENT

DRUGS (2)
  1. SLYND [Suspect]
     Active Substance: DROSPIRENONE
     Indication: Product used for unknown indication
     Route: 048
  2. IUD NOS [Suspect]
     Active Substance: COPPER OR LEVONORGESTREL
     Indication: Product used for unknown indication
     Route: 015

REACTIONS (4)
  - Vaginal haemorrhage [Unknown]
  - Device dislocation [Unknown]
  - Heavy menstrual bleeding [Unknown]
  - Alopecia [Unknown]
